FAERS Safety Report 9342974 (Version 2)
Quarter: 2013Q3

REPORT INFORMATION
  Report Type: Report from Study
  Country: FR (occurrence: FR)
  Receive Date: 20130611
  Receipt Date: 20130711
  Transmission Date: 20140515
  Serious: Yes (Other)
  Sender: FDA-Public Use
  Company Number: PHHY2012FR128657

PATIENT
  Sex: Female
  Weight: 80 kg

DRUGS (10)
  1. LAF237 [Suspect]
     Indication: TYPE 2 DIABETES MELLITUS
     Dosage: 50 MG, BID
     Dates: start: 20100603, end: 20101209
  2. LAF237 [Suspect]
     Dosage: 50 MG, BID
     Dates: start: 20110609
  3. LMF237 [Suspect]
     Indication: TYPE 2 DIABETES MELLITUS
     Dosage: 01 DF (1000 MG METF, 50 MG VILD), BID
     Dates: start: 20101209, end: 20110609
  4. AMLOR [Concomitant]
     Indication: HYPERTENSION
     Dosage: 05 MG, QD
     Dates: start: 201201
  5. GLUCOPHAGE [Concomitant]
     Dosage: 850 MG, BID
     Dates: start: 1995, end: 20101209
  6. GLUCOPHAGE [Concomitant]
     Dosage: 1000 MG, BID
     Dates: start: 20110609
  7. CRESTOR [Concomitant]
     Indication: DYSLIPIDAEMIA
     Dosage: 05 MG, QD
     Dates: start: 2008
  8. INEXIUM//ESOMEPRAZOLE SODIUM [Concomitant]
     Dosage: 40 MG, QD
  9. KARDEGIC [Concomitant]
     Indication: PROPHYLAXIS
     Dosage: 75 MG, QD
     Dates: start: 2008
  10. CACIT D3 [Concomitant]
     Dosage: UNK UKN, UNK
     Dates: start: 20120202

REACTIONS (3)
  - Blood pressure inadequately controlled [Recovered/Resolved]
  - Abdominal pain upper [Recovered/Resolved]
  - Microalbuminuria [Recovered/Resolved]
